FAERS Safety Report 4744460-5 (Version None)
Quarter: 2005Q3

REPORT INFORMATION
  Report Type: 
  Country: None (occurrence: None)
  Receive Date: 20050809
  Receipt Date: 20050728
  Transmission Date: 20060218
  Serious: Yes (Other)
  Sender: FDA-Public Use
  Company Number: 2005108198

PATIENT
  Sex: Male
  Weight: 86.1834 kg

DRUGS (9)
  1. VIAGRA [Suspect]
     Indication: ERECTILE DYSFUNCTION
  2. ACETYLSALICYLIC ACID SRT [Concomitant]
  3. VICODIN [Concomitant]
  4. INSULIN [Concomitant]
  5. PLAVIX [Concomitant]
  6. CLONIDINE [Concomitant]
  7. TRAZODONE (TRAZODONE) [Concomitant]
  8. LOPRESSOR [Concomitant]
  9. WELLBUTRIN [Concomitant]

REACTIONS (5)
  - HEART VALVE REPLACEMENT [None]
  - OPTIC ATROPHY [None]
  - PAPILLOEDEMA [None]
  - VISION BLURRED [None]
  - VISUAL FIELD DEFECT [None]
